FAERS Safety Report 24459890 (Version 1)
Quarter: 2024Q4

REPORT INFORMATION
  Report Type: Report from Study
  Country: US (occurrence: US)
  Receive Date: 20241018
  Receipt Date: 20241018
  Transmission Date: 20250115
  Serious: No
  Sender: ROCHE
  Company Number: US-ROCHE-3568509

PATIENT
  Age: 73 Year
  Sex: Male

DRUGS (19)
  1. RITUXAN [Suspect]
     Active Substance: RITUXIMAB
     Indication: Rheumatoid arthritis
     Dosage: END DATE: 10-MAY-2025?500 MG SINGLE-USE VIAL?RITUXIMAB INJECTION
     Route: 042
     Dates: start: 20240510
  2. RITUXAN [Suspect]
     Active Substance: RITUXIMAB
     Indication: Rheumatoid arthritis
  3. TYLENOL [Concomitant]
     Active Substance: ACETAMINOPHEN
  4. XANAX [Concomitant]
     Active Substance: ALPRAZOLAM
  5. VITAMIN C [Concomitant]
     Active Substance: ASCORBIC ACID
  6. ASPIRIN [Concomitant]
     Active Substance: ASPIRIN
  7. COREG [Concomitant]
     Active Substance: CARVEDILOL
  8. PROLIA [Concomitant]
     Active Substance: DENOSUMAB
  9. AVODART [Concomitant]
     Active Substance: DUTASTERIDE
  10. JARDIANCE [Concomitant]
     Active Substance: EMPAGLIFLOZIN
  11. LASIX [Concomitant]
     Active Substance: FUROSEMIDE
  12. IMODIUM [Concomitant]
     Active Substance: LOPERAMIDE HYDROCHLORIDE
  13. COZAAR [Concomitant]
     Active Substance: LOSARTAN POTASSIUM
  14. PROTONIX [Concomitant]
     Active Substance: PANTOPRAZOLE SODIUM
  15. DELTASONE [Concomitant]
     Active Substance: PREDNISONE
  16. CRESTOR [Concomitant]
     Active Substance: ROSUVASTATIN CALCIUM
  17. ALDACTONE [Concomitant]
     Active Substance: SPIRONOLACTONE
  18. ULTRAM [Concomitant]
     Active Substance: TRAMADOL HYDROCHLORIDE
  19. ZINC [Concomitant]
     Active Substance: ZINC

REACTIONS (2)
  - Off label use [Unknown]
  - No adverse event [Unknown]
